FAERS Safety Report 5715450-0 (Version None)
Quarter: 2008Q2

REPORT INFORMATION
  Report Type: 
  Country: None (occurrence: None)
  Receive Date: 20080422
  Receipt Date: 20080410
  Transmission Date: 20081010
  Serious: Yes (Other)
  Sender: FDA-Public Use
  Company Number: 233442J08USA

PATIENT
  Age: 71 Year
  Sex: Male

DRUGS (10)
  1. REBIF [Suspect]
     Indication: MULTIPLE SCLEROSIS
     Dosage: 44 MCG, 3 IN 1 WEEKS, SUBCUTANEOUS
     Route: 058
     Dates: start: 20080116
  2. ASPIRIN [Concomitant]
  3. NITROGLYCERIN [Concomitant]
  4. LISINOPRIL [Concomitant]
  5. COREG [Concomitant]
  6. PRILOSEC [Concomitant]
  7. BACLOFEN [Concomitant]
  8. VYTORIN [Concomitant]
  9. FENTANYL [Concomitant]
  10. NORCO [Concomitant]

REACTIONS (2)
  - CORONARY ARTERY OCCLUSION [None]
  - HEART RATE IRREGULAR [None]
